FAERS Safety Report 16953981 (Version 1)
Quarter: 2019Q4

REPORT INFORMATION
  Report Type: Spontaneous
  Country: US (occurrence: US)
  Receive Date: 20191023
  Receipt Date: 20191023
  Transmission Date: 20200122
  Serious: No
  Sender: FDA-Public Use
  Company Number: US-ABBVIE-19K-163-2935400-00

PATIENT
  Sex: Female

DRUGS (1)
  1. ORILISSA [Suspect]
     Active Substance: ELAGOLIX SODIUM
     Indication: ENDOMETRIOSIS
     Route: 048
     Dates: start: 201904

REACTIONS (10)
  - Arthralgia [Not Recovered/Not Resolved]
  - Headache [Unknown]
  - Middle insomnia [Unknown]
  - Hyperhidrosis [Unknown]
  - Insomnia [Unknown]
  - Amenorrhoea [Unknown]
  - Initial insomnia [Unknown]
  - Hot flush [Unknown]
  - Fatigue [Unknown]
  - Product packaging difficult to open [Unknown]

NARRATIVE: CASE EVENT DATE: 2019
